FAERS Safety Report 4846380-4 (Version None)
Quarter: 2005Q4

REPORT INFORMATION
  Report Type: 
  Country: None (occurrence: None)
  Receive Date: 20051115
  Receipt Date: 20051006
  Transmission Date: 20060501
  Serious: Yes (Other)
  Sender: FDA-Public Use
  Company Number: 420429

PATIENT
  Age: 51 Year
  Sex: Male
  Weight: 65.8 kg

DRUGS (3)
  1. PEGASYS [Suspect]
     Indication: HEPATITIS C VIRUS
     Dosage: 1 PER WEEK SUBCUTANEOUS
     Route: 058
     Dates: start: 20050115
  2. COPEGUS [Suspect]
     Indication: HEPATITIS C VIRUS
     Dosage: ORAL
     Route: 048
     Dates: start: 20050115
  3. METOPROLOL [Concomitant]

REACTIONS (3)
  - ANAEMIA [None]
  - HYPOTHYROIDISM [None]
  - THERAPY NON-RESPONDER [None]
